FAERS Safety Report 15473971 (Version 1)
Quarter: 2018Q4

REPORT INFORMATION
  Report Type: Spontaneous
  Country: US (occurrence: US)
  Receive Date: 20181008
  Receipt Date: 20181008
  Transmission Date: 20190205
  Serious: No
  Sender: FDA-Public Use
  Company Number: US-SA-2018SA274564

PATIENT
  Sex: Female

DRUGS (1)
  1. ALLEGRA INTENSIVE RELIEF ANTI-ITCH [Suspect]
     Active Substance: ALLANTOIN\DIPHENHYDRAMINE HYDROCHLORIDE

REACTIONS (2)
  - Dry skin [Unknown]
  - Pruritus [Unknown]
